FAERS Safety Report 8723093 (Version 2)
Quarter: 2012Q4

REPORT INFORMATION
  Report Type: 
  Country: BR (occurrence: BR)
  Receive Date: 20120814
  Receipt Date: 20120918
  Transmission Date: 20130627
  Serious: Yes (Other)
  Sender: FDA-Public Use
  Company Number: BR-ABBOTT-12P-020-0967293-00

PATIENT
  Sex: Male

DRUGS (1)
  1. DEPAKENE CAPSULES [Suspect]
     Indication: EPILEPSY
     Dates: start: 2010, end: 201208

REACTIONS (5)
  - Physical assault [Unknown]
  - Fall [Unknown]
  - Femur fracture [Unknown]
  - Pain [Unknown]
  - Mobility decreased [Unknown]
